FAERS Safety Report 11916844 (Version 7)
Quarter: 2017Q4

REPORT INFORMATION
  Report Type: Spontaneous
  Country: US (occurrence: US)
  Receive Date: 20160114
  Receipt Date: 20171116
  Transmission Date: 20180320
  Serious: Yes (Other)
  Sender: FDA-Public Use
  Company Number: US-PFIZER INC-2015459816

PATIENT
  Age: 67 Year
  Sex: Male
  Weight: 111 kg

DRUGS (15)
  1. INLYTA [Suspect]
     Active Substance: AXITINIB
     Dosage: 4 MG, 2X/DAY(DECREASED TO 1MG TABLETS AND TOOK 4 TABLETS TWICE A DAY)
  2. INLYTA [Suspect]
     Active Substance: AXITINIB
     Dosage: 2 MG, 2X/DAY
     Dates: start: 201602
  3. ATORVASTATIN [Concomitant]
     Active Substance: ATORVASTATIN
     Indication: BLOOD CHOLESTEROL ABNORMAL
     Dosage: 20 MG, 1X/DAY
     Route: 048
  4. XGEVA [Concomitant]
     Active Substance: DENOSUMAB
     Indication: BONE DISORDER
     Dosage: UNK, MONTHLY (ONCE A MONTH)
     Dates: start: 2015
  5. INLYTA [Suspect]
     Active Substance: AXITINIB
     Dosage: 3 MG, 2X/DAY (1 MG, 3 TABLETS, TWICE A DAY)
     Route: 048
     Dates: end: 20171023
  6. LEVOTHYROXINE. [Concomitant]
     Active Substance: LEVOTHYROXINE
     Indication: THYROID DISORDER
     Dosage: 0.175 MG, DAILY
  7. CARTIA XT [Concomitant]
     Active Substance: DILTIAZEM HYDROCHLORIDE
     Indication: BLOOD PRESSURE ABNORMAL
     Dosage: 240 MG, 1X/DAY
     Route: 048
     Dates: start: 2015
  8. INLYTA [Suspect]
     Active Substance: AXITINIB
     Dosage: THREE 1 MG, TABLET, TWICE A DAY MORNING AND NIGHT
     Route: 048
     Dates: start: 201601
  9. OXYCODONE [Concomitant]
     Active Substance: OXYCODONE
     Indication: PAIN
     Dosage: 5 MG, 3X/DAY
     Dates: start: 2015
  10. INLYTA [Suspect]
     Active Substance: AXITINIB
     Dosage: 3 MG, 2X/DAY
  11. DILTIAZEM CD [Concomitant]
     Active Substance: DILTIAZEM
     Dosage: 180 MG, DAILY
  12. INLYTA [Suspect]
     Active Substance: AXITINIB
     Indication: RENAL CANCER METASTATIC
     Dosage: 5 MG, 2X/DAY (5MG TABLET, TWICE A DAY)
     Route: 048
     Dates: start: 201508
  13. ATENOLOL. [Concomitant]
     Active Substance: ATENOLOL
     Indication: BLOOD PRESSURE ABNORMAL
     Dosage: 50 MG, 1X/DAY
     Route: 048
  14. CITRACAL + VITAMIN D [Concomitant]
     Dosage: 500 IU, DAILY
  15. LEVOTHYROXINE. [Concomitant]
     Active Substance: LEVOTHYROXINE
     Dosage: 0.2 MG, 1X/DAY
     Route: 048
     Dates: start: 2008

REACTIONS (8)
  - Pain [Recovered/Resolved]
  - Diarrhoea [Recovered/Resolved]
  - Blister [Recovered/Resolved]
  - Hand-foot-and-mouth disease [Recovered/Resolved]
  - Aphonia [Not Recovered/Not Resolved]
  - Neoplasm progression [Unknown]
  - Device failure [Unknown]
  - Glycosylated haemoglobin increased [Unknown]

NARRATIVE: CASE EVENT DATE: 2015
